FAERS Safety Report 10657339 (Version 1)
Quarter: 2014Q4

REPORT INFORMATION
  Report Type: Spontaneous
  Country: ES (occurrence: None)
  Receive Date: 20141215
  Receipt Date: 20141215
  Transmission Date: 20150529
  Serious: Yes (Other)
  Sender: FDA-Public Use
  Company Number: 2014ES010665

PATIENT
  Age: 81 Year
  Sex: Male

DRUGS (1)
  1. ELIGARD [Suspect]
     Active Substance: LEUPROLIDE ACETATE
     Indication: PROSTATE CANCER
     Dosage: 45 MG, BIANUALLY, SUBCUTANEOUS
     Route: 058
     Dates: start: 20140301, end: 20140301

REACTIONS (2)
  - Peripheral swelling [None]
  - Hot flush [None]

NARRATIVE: CASE EVENT DATE: 201403
